FAERS Safety Report 10600278 (Version 1)
Quarter: 2014Q4

REPORT INFORMATION
  Report Type: Spontaneous
  Country: US (occurrence: US)
  Receive Date: 20141123
  Receipt Date: 20141123
  Transmission Date: 20150529
  Serious: Yes (Death, Hospitalization, Other)
  Sender: FDA-Public Use
  Company Number: US-MYLANLABS-2014M1011549

PATIENT

DRUGS (1)
  1. MINOCYCLINE [Suspect]
     Active Substance: MINOCYCLINE\MINOCYCLINE HYDROCHLORIDE
     Indication: DERMATITIS
     Route: 065

REACTIONS (5)
  - Myocarditis [Fatal]
  - Drug reaction with eosinophilia and systemic symptoms [Fatal]
  - Acute kidney injury [Unknown]
  - Eosinophilic myocarditis [Fatal]
  - Multi-organ failure [Fatal]
